FAERS Safety Report 4632672-0 (Version None)
Quarter: 2005Q2

REPORT INFORMATION
  Report Type: 
  Country: None (occurrence: None)
  Receive Date: 20050331
  Receipt Date: 20041029
  Transmission Date: 20051028
  Serious: Yes (Other)
  Sender: FDA-Public Use
  Company Number: 200415259BCC

PATIENT
  Age: 76 Year
  Sex: Female
  Weight: 140 kg

DRUGS (12)
  1. ALEVE (CAPLET) [Suspect]
     Indication: ARTHRITIS
     Dosage: 220 MG, QD, ORAL
     Route: 048
     Dates: start: 20041023, end: 20041026
  2. VITAMIN B COMPLEX CAP [Concomitant]
  3. SHAKELEE ZINC [Concomitant]
  4. THOMPSON POTASSIUM [Concomitant]
  5. SOLAR CALCIUM [Concomitant]
  6. GARLIC [Concomitant]
  7. VITAMIN C [Concomitant]
  8. NAPROXEN [Concomitant]
  9. VIOXX [Concomitant]
  10. METHOCARBAMOL [Concomitant]
  11. ORUVAIL [Concomitant]
  12. VOLTAREN [Concomitant]

REACTIONS (1)
  - EPISTAXIS [None]
